FAERS Safety Report 17596840 (Version 4)
Quarter: 2021Q1

REPORT INFORMATION
  Report Type: Spontaneous
  Country: US (occurrence: US)
  Receive Date: 20200330
  Receipt Date: 20210120
  Transmission Date: 20210419
  Serious: Yes (Other)
  Sender: FDA-Public Use
  Company Number: US-PFIZER INC-2017000855

PATIENT
  Age: 62 Year
  Sex: Male

DRUGS (25)
  1. GLUCOSAMINE HCL [Concomitant]
     Active Substance: GLUCOSAMINE
     Dosage: 3000 MG, 1X/DAY
     Route: 048
  2. AMOXAL [AMOXICILLIN] [Concomitant]
     Dosage: 500 MG, 2X/DAY (TAKE 500 MG BY MOUTH EVERY 12 HOURS)
     Route: 048
  3. LYRICA [Suspect]
     Active Substance: PREGABALIN
     Indication: NEUROPATHY PERIPHERAL
     Dosage: 100 MG, 3X/DAY
     Route: 048
     Dates: start: 20161213
  4. COREG [Concomitant]
     Active Substance: CARVEDILOL
     Dosage: 12.5 MG, 2X/DAY (1 TABLET BY MOUTH TWICE DAILY WITH BREAKFAST AND SUPPER)
     Route: 048
  5. GINSENG [PANAX GINSENG] [Concomitant]
     Dosage: 600 MG, 3X/DAY
     Route: 048
  6. PROCTOZONE HC [Concomitant]
     Active Substance: HYDROCORTISONE
     Dosage: 2 %, UNK
  7. MIRALAX [Concomitant]
     Active Substance: POLYETHYLENE GLYCOL 3350
     Dosage: 17 G, 1X/DAY
     Route: 048
  8. SEPTRA DS [Concomitant]
     Active Substance: SULFAMETHOXAZOLE\TRIMETHOPRIM
     Dosage: UNK [800 MG, SULFAMETHOXAZOLE, 160 MG TRIMETHOPRIM]
  9. BACTRIM DS [Concomitant]
     Active Substance: SULFAMETHOXAZOLE\TRIMETHOPRIM
     Dosage: UNK[800 MG, SULFAMETHOXAZOLE, 160 MG TRIMETHOPRIM]
  10. FERROUS SULFATE. [Concomitant]
     Active Substance: FERROUS SULFATE
     Dosage: 325 MG, 2X/DAY (TAKE 1 TABLET BY MOUTH TWICE DAILY WITH BREAKFAST AND SUPPER)
     Route: 048
  11. LASIX [Concomitant]
     Active Substance: FUROSEMIDE
     Dosage: 20 MG, DAILY (TAKE 1 TABLET BY MOUTH DAILY WITH BREAKFAST)
     Route: 048
  12. ACETAMINOPHEN;HYDROCODONE [Concomitant]
     Active Substance: ACETAMINOPHEN\HYDROCODONE
     Indication: PAIN
     Dosage: UNK UNK, AS NEEDED (10MG HYDROCODONE, 325 MGPARACETAMOL)
     Route: 048
  13. ANUSOL HC [Concomitant]
     Active Substance: HYDROCORTISONE
     Dosage: 2.5 %, 1X/DAY (PLACE RECTALLY AT BEDTIME)
     Route: 054
  14. ALDACTONE [Concomitant]
     Active Substance: SPIRONOLACTONE
     Dosage: 50 MG, DAILY
     Route: 048
  15. FISH OIL [Concomitant]
     Active Substance: FISH OIL
     Dosage: 2000 MG, 1X/DAY
     Route: 048
  16. PRILOSEC [Concomitant]
     Active Substance: OMEPRAZOLE MAGNESIUM
     Dosage: 20 MG, 2X/DAY (1 CAPSULE BY MOUTH TWICE DAILY BEFORE BREAKFAST AND SUPPER)
     Route: 048
  17. LYRICA [Suspect]
     Active Substance: PREGABALIN
     Indication: NEURALGIA
     Dosage: 100 MG, 3X/DAY
     Route: 048
     Dates: start: 20201214
  18. ASPIRIN [ACETYLSALICYLIC ACID] [Concomitant]
     Active Substance: ASPIRIN
     Dosage: 81 MG, 1X/DAY
     Route: 048
  19. LASIX [Concomitant]
     Active Substance: FUROSEMIDE
     Dosage: 80 MG, DAILY (TAKE 4 TABLET BY MOUTH DAILY WITH BREAKFAST.)
     Route: 048
  20. NORVASC [Concomitant]
     Active Substance: AMLODIPINE BESYLATE
     Dosage: 5 MG, 1X/DAY
     Route: 048
  21. LIPITOR [Concomitant]
     Active Substance: ATORVASTATIN CALCIUM
     Dosage: 40 MG, 1X/DAY
     Route: 048
  22. NITROSTAT [Concomitant]
     Active Substance: NITROGLYCERIN
     Indication: CHEST PAIN
     Dosage: 0.3 MG, AS NEEDED (PLACE 1 TABLET UNDER THE TONGUE EVERY 5 MINUTES AS NEEDED)
     Route: 048
  23. FISH OIL [Concomitant]
     Active Substance: FISH OIL
     Dosage: 1000 MG, 2X/DAY (WITH BREAKFAST AND SUPPER)
     Route: 048
  24. ALDACTONE [Concomitant]
     Active Substance: SPIRONOLACTONE
     Dosage: 200 MG, DAILY
     Route: 048
  25. DESYREL [Concomitant]
     Active Substance: TRAZODONE HYDROCHLORIDE
     Indication: SLEEP DISORDER
     Dosage: 100 MG, AS NEEDED (TAKE 1 TABLET BY MOUTH AT BEDTIME AS NEEDED)
     Route: 048

REACTIONS (5)
  - Hepatic cirrhosis [Unknown]
  - Post procedural infection [Recovered/Resolved]
  - Abdominal pain upper [Unknown]
  - Psoriasis [Unknown]
  - Thinking abnormal [Unknown]

NARRATIVE: CASE EVENT DATE: 201701
